FAERS Safety Report 9138985 (Version 3)
Quarter: 2013Q1

REPORT INFORMATION
  Report Type: Spontaneous
  Country: JP (occurrence: JP)
  Receive Date: 20130305
  Receipt Date: 20130327
  Transmission Date: 20140127
  Serious: No
  Sender: FDA-Public Use
  Company Number: JP-ELI_LILLY_AND_COMPANY-JP201302007888

PATIENT
  Age: 65 Year
  Sex: Female

DRUGS (4)
  1. ZYPREXA [Suspect]
     Indication: BIPOLAR II DISORDER
     Dosage: 10 MG, QD
     Route: 048
     Dates: start: 20130121, end: 20130201
  2. SELARA [Concomitant]
     Dosage: UNK
     Route: 048
     Dates: end: 20130201
  3. DIOVAN [Concomitant]
     Dosage: UNK
     Route: 048
     Dates: end: 20130201
  4. ARTIST [Concomitant]
     Dosage: UNK
     Route: 048
     Dates: end: 20130201

REACTIONS (1)
  - Eosinophil count increased [Recovering/Resolving]
